FAERS Safety Report 10697330 (Version 1)
Quarter: 2015Q1

REPORT INFORMATION
  Report Type: Spontaneous
  Country: US (occurrence: US)
  Receive Date: 20150108
  Receipt Date: 20150108
  Transmission Date: 20150721
  Serious: No
  Sender: FDA-Public Use
  Company Number: US-ASTRAZENECA-2014SE98896

PATIENT
  Age: 1002 Month
  Sex: Female
  Weight: 49.9 kg

DRUGS (3)
  1. TENORMIN [Suspect]
     Active Substance: ATENOLOL
     Indication: HYPERTENSION
     Route: 048
     Dates: start: 201410
  2. ECOTRIN [Concomitant]
     Active Substance: ASPIRIN
     Indication: ATRIAL FIBRILLATION
     Dosage: AT NIGHT
     Route: 048
     Dates: start: 201410
  3. TENORMIN [Suspect]
     Active Substance: ATENOLOL
     Indication: HEART RATE INCREASED
     Route: 048
     Dates: start: 201410

REACTIONS (4)
  - Rhinorrhoea [Not Recovered/Not Resolved]
  - Hyperphagia [Unknown]
  - Weight fluctuation [Recovered/Resolved]
  - Cough [Unknown]

NARRATIVE: CASE EVENT DATE: 201410
